FAERS Safety Report 10378474 (Version 2)
Quarter: 2014Q3

REPORT INFORMATION
  Report Type: Spontaneous
  Country: US (occurrence: None)
  Receive Date: 20140807
  Receipt Date: 20140827
  Transmission Date: 20150326
  Serious: Yes (Other)
  Sender: FDA-Public Use
  Company Number: 2014-US-009540

PATIENT
  Age: 64 Year
  Sex: Female

DRUGS (4)
  1. KLONOPIN (CLONAZEPAM) [Concomitant]
  2. MELATONIN [Concomitant]
     Active Substance: MELATONIN
  3. XYREM [Suspect]
     Active Substance: SODIUM OXYBATE
     Indication: CATAPLEXY
     Route: 048
     Dates: start: 200409, end: 200501
  4. XYREM [Suspect]
     Active Substance: SODIUM OXYBATE
     Indication: NARCOLEPSY
     Route: 048
     Dates: start: 200409, end: 200501

REACTIONS (4)
  - Somnolence [None]
  - Hypnagogic hallucination [None]
  - Ankle fracture [None]
  - Drug ineffective [None]
